FAERS Safety Report 9448763 (Version 1)
Quarter: 2013Q3

REPORT INFORMATION
  Report Type: Other
  Country: DE (occurrence: TR)
  Receive Date: 20130808
  Receipt Date: 20130808
  Transmission Date: 20140515
  Serious: Yes (Other)
  Sender: FDA-Public Use
  Company Number: DE-ACTELION-A-NJ2013-86020

PATIENT
  Sex: Male

DRUGS (4)
  1. VENTAVIS BAYER SCHERING [Suspect]
     Indication: PRODUCT USED FOR UNKNOWN INDICATION
     Route: 064
  2. VENTAVIS BAYER SCHERING [Suspect]
     Dosage: UNK
     Route: 064
  3. SILDENAFIL [Suspect]
     Route: 064
  4. HEPARIN [Suspect]
     Route: 064

REACTIONS (6)
  - Premature baby [Unknown]
  - Foetal exposure during pregnancy [Unknown]
  - Low birth weight baby [Unknown]
  - Sinus tachycardia [Unknown]
  - Neonatal respiratory distress syndrome [Unknown]
  - Bronchopulmonary dysplasia [Unknown]
